FAERS Safety Report 9259091 (Version 2)
Quarter: 2013Q2

REPORT INFORMATION
  Report Type: Spontaneous
  Country: GR (occurrence: GR)
  Receive Date: 20130426
  Receipt Date: 20130531
  Transmission Date: 20140414
  Serious: Yes (Hospitalization)
  Sender: FDA-Public Use
  Company Number: GR-ASTRAZENECA-2013SE27734

PATIENT
  Age: 86 Year
  Sex: Male

DRUGS (5)
  1. TENORMIN [Suspect]
     Indication: HYPERTENSION
     Route: 048
     Dates: start: 2013
  2. GLUCOPHAGE [Concomitant]
     Indication: DIABETES MELLITUS
     Route: 048
  3. DIAMICRON MR [Concomitant]
     Indication: DIABETES MELLITUS
     Route: 048
  4. OLARTAN [Concomitant]
     Indication: HYPERTENSION
     Route: 048
  5. UNITENS [Concomitant]
     Indication: HYPERTENSION
     Route: 048

REACTIONS (2)
  - Skin exfoliation [Recovering/Resolving]
  - Erythema [Recovering/Resolving]
